FAERS Safety Report 8964848 (Version 1)
Quarter: 2012Q4

REPORT INFORMATION
  Report Type: Report from Study
  Country: FR (occurrence: FR)
  Receive Date: 20121214
  Receipt Date: 20121214
  Transmission Date: 20130627
  Serious: Yes (Hospitalization)
  Sender: FDA-Public Use
  Company Number: FR-ROCHE-1168125

PATIENT
  Age: 72 Year
  Sex: Male

DRUGS (6)
  1. RITUXIMAB [Suspect]
     Indication: CHRONIC LYMPHOCYTIC LEUKAEMIA
     Route: 041
     Dates: start: 20120718, end: 20120718
  2. RITUXIMAB [Suspect]
     Route: 041
     Dates: start: 20111114, end: 20111114
  3. FLUDARA [Suspect]
     Indication: CHRONIC LYMPHOCYTIC LEUKAEMIA
     Route: 048
     Dates: start: 20111114, end: 20111116
  4. ENDOXAN [Suspect]
     Indication: CHRONIC LYMPHOCYTIC LEUKAEMIA
     Route: 048
     Dates: start: 20111114, end: 20111116
  5. ZELITREX [Concomitant]
     Route: 002
     Dates: start: 20110826
  6. BACTRIM [Concomitant]
     Route: 002
     Dates: start: 20110826

REACTIONS (2)
  - Bronchopneumopathy [Not Recovered/Not Resolved]
  - Pyrexia [Not Recovered/Not Resolved]
